FAERS Safety Report 7821804 (Version 4)
Quarter: 2013Q1

REPORT INFORMATION
  Report Type: Report from Study
  Country: IT (occurrence: IT)
  Receive Date: 20110222
  Receipt Date: 20130219
  Transmission Date: 20140127
  Serious: Yes (Death, Other)
  Sender: FDA-Public Use
  Company Number: IT-CELGENEUS-083-20785-11021445

PATIENT
  Sex: 0

DRUGS (7)
  1. THALIDOMIDE [Suspect]
     Indication: PLASMA CELL MYELOMA
     Dosage: 50 MILLIGRAM
     Route: 048
  2. BORTEZOMIB [Suspect]
     Indication: PLASMA CELL MYELOMA
     Route: 065
  3. MELPHALAN [Suspect]
     Indication: PLASMA CELL MYELOMA
     Route: 065
  4. PREDNISONE [Suspect]
     Indication: PLASMA CELL MYELOMA
     Route: 065
  5. ASA [Concomitant]
     Indication: THROMBOSIS PROPHYLAXIS
     Dosage: 100 MILLIGRAM
     Route: 065
  6. WARFARIN [Concomitant]
     Indication: THROMBOSIS PROPHYLAXIS
     Dosage: 1.25 MILLIGRAM
     Route: 065
  7. LMWH [Concomitant]
     Indication: THROMBOSIS PROPHYLAXIS
     Dosage: 40 MILLIGRAM
     Route: 065

REACTIONS (19)
  - Death [Fatal]
  - Haemorrhage urinary tract [Fatal]
  - Gastrointestinal haemorrhage [Fatal]
  - Sudden death [Fatal]
  - Cardiac arrest [Fatal]
  - Acute myocardial infarction [Fatal]
  - Pulmonary embolism [Fatal]
  - Arterial thrombosis [Unknown]
  - Cerebrovascular accident [Unknown]
  - Neutropenia [Unknown]
  - Anaemia [Unknown]
  - Deep vein thrombosis [Unknown]
  - Thrombocytopenia [Unknown]
  - Infection [Unknown]
  - Haematotoxicity [Unknown]
  - Epistaxis [Unknown]
  - Skin haemorrhage [Unknown]
  - Plasma cell myeloma [Unknown]
  - Neuropathy peripheral [Unknown]
